FAERS Safety Report 24667006 (Version 1)
Quarter: 2024Q4

REPORT INFORMATION
  Report Type: Spontaneous
  Country: CA (occurrence: CA)
  Receive Date: 20241126
  Receipt Date: 20241126
  Transmission Date: 20250114
  Serious: Yes (Other)
  Sender: TEVA
  Company Number: CA-TEVA-VS-3266682

PATIENT
  Age: 41 Year
  Sex: Male

DRUGS (7)
  1. ZOLEDRONIC ACID [Suspect]
     Active Substance: ZOLEDRONIC ACID
     Indication: Parathyroid tumour malignant
     Dosage: DOSE FORM: NOT SPECIFIED
     Route: 065
  2. DENOSUMAB [Suspect]
     Active Substance: DENOSUMAB
     Indication: Parathyroid tumour malignant
     Dosage: DOSE FORM: SOLUTION SUBCUTANEOUS
     Route: 065
  3. NEXAVAR [Suspect]
     Active Substance: SORAFENIB
     Indication: Parathyroid tumour malignant
     Route: 065
  4. ETOPOSIDE [Suspect]
     Active Substance: ETOPOSIDE
     Indication: Parathyroid tumour malignant
     Dosage: DOSE FORM: NOT SPECIFIED
     Route: 065
  5. CAPECITABINE [Suspect]
     Active Substance: CAPECITABINE
     Indication: Parathyroid tumour malignant
     Dosage: DOSE FORM: NOT SPECIFIED
     Route: 065
  6. TEMOZOLOMIDE [Suspect]
     Active Substance: TEMOZOLOMIDE
     Indication: Parathyroid tumour malignant
     Dosage: DOSE FORM: NOT SPECIFIED
     Route: 065
  7. CISPLATIN [Suspect]
     Active Substance: CISPLATIN
     Indication: Parathyroid tumour malignant
     Route: 042

REACTIONS (7)
  - Diarrhoea [Unknown]
  - Hepatic encephalopathy [Unknown]
  - Blood bilirubin increased [Unknown]
  - Metastases to lymph nodes [Unknown]
  - Parathyroid tumour malignant [Unknown]
  - Metastases to peritoneum [Unknown]
  - Metastases to liver [Unknown]
